FAERS Safety Report 4558076-7 (Version None)
Quarter: 2005Q1

REPORT INFORMATION
  Report Type: 
  Country: None (occurrence: None)
  Receive Date: 20050121
  Receipt Date: 20040913
  Transmission Date: 20050727
  Serious: Yes (Other)
  Sender: FDA-Public Use
  Company Number: US-BRISTOL-MYERS SQUIBB COMPANY-12701892

PATIENT
  Age: 44 Year
  Sex: Male

DRUGS (1)
  1. SERZONE [Suspect]
     Dosage: TAKEN ON 12-19-2000 THERAPY DATES NOT CONFIRMED IN MEDICAL RECORDS.

REACTIONS (1)
  - HEPATIC ENZYME INCREASED [None]
